FAERS Safety Report 18875838 (Version 2)
Quarter: 2021Q1

REPORT INFORMATION
  Report Type: Report from Study
  Country: MX (occurrence: MX)
  Receive Date: 20210210
  Receipt Date: 20210301
  Transmission Date: 20210420
  Serious: Yes (Other)
  Sender: FDA-Public Use
  Company Number: NVSC2021MX022263

PATIENT
  Sex: Female
  Weight: 70 kg

DRUGS (1)
  1. DIOVAN [Suspect]
     Active Substance: VALSARTAN
     Indication: HYPERTENSION
     Dosage: 1 DF, QD (80 MG)
     Route: 048
     Dates: start: 2019, end: 202003

REACTIONS (2)
  - Impaired healing [Unknown]
  - Umbilical hernia [Unknown]
